FAERS Safety Report 16003534 (Version 1)
Quarter: 2019Q1

REPORT INFORMATION
  Report Type: Other
  Country: DE (occurrence: DE)
  Receive Date: 20190226
  Receipt Date: 20190226
  Transmission Date: 20190418
  Serious: No
  Sender: FDA-Public Use
  Company Number: DE-LUPIN PHARMACEUTICALS INC.-2018-08757

PATIENT
  Age: 69 Year
  Sex: Female
  Weight: 69 kg

DRUGS (4)
  1. SIMVASTATIN. [Suspect]
     Active Substance: SIMVASTATIN
     Indication: CORONARY ARTERY DISEASE
     Dosage: UNK
     Route: 065
     Dates: start: 201609, end: 201611
  2. ROSUVASTATIN. [Suspect]
     Active Substance: ROSUVASTATIN
     Indication: CORONARY ARTERY DISEASE
     Dosage: UNK
     Route: 065
     Dates: start: 201802, end: 201804
  3. ATORVASTATIN [Suspect]
     Active Substance: ATORVASTATIN
     Indication: STENT PLACEMENT
     Dosage: UNK
     Route: 065
     Dates: start: 201607, end: 201608
  4. EZETROL [Suspect]
     Active Substance: EZETIMIBE
     Indication: CORONARY ARTERY DISEASE
     Dosage: UNK
     Route: 065
     Dates: start: 201804

REACTIONS (2)
  - Myalgia [Recovering/Resolving]
  - Drug eruption [Recovering/Resolving]
